FAERS Safety Report 19495227 (Version 1)
Quarter: 2021Q3

REPORT INFORMATION
  Report Type: Report from Study
  Country: AU (occurrence: AU)
  Receive Date: 20210705
  Receipt Date: 20210705
  Transmission Date: 20211014
  Serious: Yes (Death, Other)
  Sender: FDA-Public Use
  Company Number: AU-JNJFOC-20210709765

PATIENT
  Age: 79 Year
  Sex: Male

DRUGS (5)
  1. OXYCODONE [Interacting]
     Active Substance: OXYCODONE
     Dosage: 20 MILLIGRAM, AS NEEDED
     Route: 065
  2. ROPIVACAINE. [Interacting]
     Active Substance: ROPIVACAINE HYDROCHLORIDE
     Indication: PRODUCT USED FOR UNKNOWN INDICATION
     Dosage: UNK
     Route: 065
  3. OXYCODONE [Interacting]
     Active Substance: OXYCODONE
     Indication: PRODUCT USED FOR UNKNOWN INDICATION
     Dosage: 20 MILLIGRAM, 2/DAY
     Route: 048
  4. MORPHINE [Interacting]
     Active Substance: MORPHINE
     Indication: PRODUCT USED FOR UNKNOWN INDICATION
     Dosage: 10 MILLIGRAM, ONCE
     Route: 030
  5. TRAMADOL HYDROCHLORIDE. [Suspect]
     Active Substance: TRAMADOL HYDROCHLORIDE
     Indication: PRODUCT USED FOR UNKNOWN INDICATION
     Dosage: 100 MILLIGRAM, AS NEEDED
     Route: 042

REACTIONS (5)
  - Unresponsive to stimuli [Fatal]
  - Myocardial ischaemia [Fatal]
  - Drug interaction [Fatal]
  - Toxicity to various agents [Fatal]
  - Emphysema [Fatal]
